FAERS Safety Report 6049176-3 (Version None)
Quarter: 2009Q1

REPORT INFORMATION
  Report Type: 
  Country: None (occurrence: None)
  Receive Date: 20090123
  Receipt Date: 20090115
  Transmission Date: 20090719
  Serious: Yes (Other)
  Sender: FDA-Public Use
  Company Number: BR-PFIZER INC-2008010272

PATIENT

DRUGS (7)
  1. LIPITOR [Suspect]
     Indication: BLOOD CHOLESTEROL INCREASED
     Dosage: 10 MG, 1X/DAY
     Route: 048
     Dates: start: 20080101, end: 20080101
  2. SIMVASTATIN [Suspect]
     Dosage: UNK
     Route: 048
  3. GALVUS [Suspect]
     Indication: DIABETES MELLITUS
     Dosage: UNK
  4. RIVOTRIL [Concomitant]
     Dosage: UNK
     Dates: start: 20080901
  5. BENERVA [Concomitant]
     Dosage: UNK
     Dates: start: 20070101
  6. INSULIN [Concomitant]
     Dosage: UNK
  7. DRUG, UNSPECIFIED [Concomitant]
     Dosage: UNK
     Route: 048

REACTIONS (6)
  - DIZZINESS [None]
  - HYPERSENSITIVITY [None]
  - MYALGIA [None]
  - PAIN IN EXTREMITY [None]
  - RASH [None]
  - THROAT TIGHTNESS [None]
